FAERS Safety Report 10556257 (Version 1)
Quarter: 2014Q4

REPORT INFORMATION
  Report Type: Spontaneous
  Country: GR (occurrence: GR)
  Receive Date: 20141031
  Receipt Date: 20141031
  Transmission Date: 20150529
  Serious: Yes (Hospitalization, Other)
  Sender: FDA-Public Use
  Company Number: GR-009507513-1410GRC015481

PATIENT
  Age: 70 Year
  Sex: Female

DRUGS (1)
  1. JANUMET [Suspect]
     Active Substance: METFORMIN HYDROCHLORIDE\SITAGLIPTIN PHOSPHATE
     Indication: DIABETES MELLITUS
     Dosage: 2 TB EVERY DAY
     Route: 048
     Dates: start: 201210

REACTIONS (4)
  - Rib fracture [Unknown]
  - Splenectomy [Unknown]
  - Fall [Unknown]
  - Splenic injury [Unknown]

NARRATIVE: CASE EVENT DATE: 2014
